FAERS Safety Report 6709742-6 (Version None)
Quarter: 2010Q2

REPORT INFORMATION
  Report Type: 
  Country: None (occurrence: None)
  Receive Date: 20100504
  Receipt Date: 20100423
  Transmission Date: 20101027
  Serious: Yes (Other)
  Sender: FDA-Public Use
  Company Number: CA-NAPPMUNDI-CAN-2010-0001334

PATIENT
  Age: 67 Year
  Sex: Female

DRUGS (3)
  1. DILAUDID [Suspect]
     Indication: PAIN
     Dosage: 2 TABLET, QID PRN
     Route: 048
     Dates: start: 20090201
  2. DILAUDID [Suspect]
     Dosage: 1 TABLET, Q4H PRN
     Route: 048
  3. PARIET [Concomitant]
     Indication: GASTROOESOPHAGEAL REFLUX DISEASE
     Dosage: 20 MG, DAILY
     Route: 048
     Dates: start: 20090201

REACTIONS (7)
  - CONSTIPATION [None]
  - DIZZINESS [None]
  - HEADACHE [None]
  - NAUSEA [None]
  - PALPITATIONS [None]
  - SLEEP DISORDER [None]
  - WEIGHT DECREASED [None]
